FAERS Safety Report 17136414 (Version 2)
Quarter: 2019Q4

REPORT INFORMATION
  Report Type: Spontaneous
  Country: BG (occurrence: BG)
  Receive Date: 20191210
  Receipt Date: 20191222
  Transmission Date: 20200122
  Serious: No
  Sender: FDA-Public Use
  Company Number: BG-ASTRAZENECA-2019SF73894

PATIENT
  Age: 62 Year
  Sex: Female
  Weight: 75 kg

DRUGS (4)
  1. FASENRA [Suspect]
     Active Substance: BENRALIZUMAB
     Indication: ASTHMA
     Route: 058
     Dates: start: 20190724
  2. FOSTER [Concomitant]
     Active Substance: BECLOMETHASONE\FORMOTEROL
  3. SPIRIVA RESPIMAT [Concomitant]
     Active Substance: TIOTROPIUM BROMIDE
  4. NOLIPREL FORTE [Concomitant]
     Indication: HYPERTENSION

REACTIONS (3)
  - Spinal osteoarthritis [Recovering/Resolving]
  - Weight increased [Recovering/Resolving]
  - Intervertebral disc disorder [Recovering/Resolving]

NARRATIVE: CASE EVENT DATE: 2019
